FAERS Safety Report 4273166-4 (Version None)
Quarter: 2004Q1

REPORT INFORMATION
  Report Type: 
  Country: None (occurrence: None)
  Receive Date: 20040116
  Receipt Date: 20040108
  Transmission Date: 20041129
  Serious: Yes (Other)
  Sender: FDA-Public Use
  Company Number: PHEH2004US00698

PATIENT
  Sex: Male
  Weight: 1 kg

DRUGS (6)
  1. TRILEPTAL [Suspect]
     Route: 064
  2. ESTROGEN NOS [Concomitant]
     Route: 064
  3. PROGESTERONE [Concomitant]
     Route: 064
  4. CIPROFLOXACIN [Concomitant]
     Route: 064
  5. LUPRON [Concomitant]
     Route: 064
  6. REPRONEX [Concomitant]
     Route: 064

REACTIONS (10)
  - BREECH DELIVERY [None]
  - CARDIAC MURMUR [None]
  - HYPERBILIRUBINAEMIA NEONATAL [None]
  - MATERNAL DRUGS AFFECTING FOETUS [None]
  - METABOLIC ACIDOSIS [None]
  - NEONATAL APNOEIC ATTACK [None]
  - NEONATAL DISORDER [None]
  - NEONATAL RESPIRATORY DISTRESS SYNDROME [None]
  - PATENT DUCTUS ARTERIOSUS [None]
  - PREMATURE BABY [None]
